FAERS Safety Report 21237271 (Version 4)
Quarter: 2023Q2

REPORT INFORMATION
  Report Type: Spontaneous
  Country: US (occurrence: US)
  Receive Date: 20220822
  Receipt Date: 20230410
  Transmission Date: 20230721
  Serious: Yes (Other)
  Sender: FDA-Public Use
  Company Number: US-BRISTOL-MYERS SQUIBB COMPANY-2022-088503

PATIENT
  Age: 81 Year
  Sex: Female

DRUGS (2)
  1. IDHIFA [Suspect]
     Active Substance: ENASIDENIB MESYLATE
     Indication: Product used for unknown indication
     Dosage: FREQ : TAKE 1 TABLET BY MOUTH DAILY
     Route: 048
  2. IDHIFA [Suspect]
     Active Substance: ENASIDENIB MESYLATE
     Dosage: FREQ : TAKE 1 TABLET BY MOUTH DAILY
     Route: 048

REACTIONS (1)
  - Nausea [Unknown]
